FAERS Safety Report 17046788 (Version 3)
Quarter: 2024Q1

REPORT INFORMATION
  Report Type: Spontaneous
  Country: US (occurrence: US)
  Receive Date: 20191119
  Receipt Date: 20240304
  Transmission Date: 20240410
  Serious: No
  Sender: FDA-Public Use
  Company Number: US-COHERUS BIOSCIENCES, INC-2019US010313

PATIENT

DRUGS (11)
  1. UDENYCA [Suspect]
     Active Substance: PEGFILGRASTIM-CBQV
     Indication: Product used for unknown indication
     Dosage: UNK
  2. ACYCLOVIR SODIUM [Concomitant]
     Active Substance: ACYCLOVIR SODIUM
     Dosage: 200 MG
  3. BACTRIM DS [Concomitant]
     Active Substance: SULFAMETHOXAZOLE\TRIMETHOPRIM
     Dosage: 800-160 MG
  4. BACTRIM DS [Concomitant]
     Active Substance: SULFAMETHOXAZOLE\TRIMETHOPRIM
     Dosage: UNK
  5. PEPCID AC [Concomitant]
     Active Substance: FAMOTIDINE
     Dosage: 20 MG
  6. CIPROFLOXACIN\CIPROFLOXACIN HYDROCHLORIDE [Concomitant]
     Active Substance: CIPROFLOXACIN\CIPROFLOXACIN HYDROCHLORIDE
  7. FLUCONAZOLE [Concomitant]
     Active Substance: FLUCONAZOLE
     Dosage: 200 MG
  8. MELATONIN [Concomitant]
     Active Substance: MELATONIN
     Dosage: 3 MG
  9. KLOR-CON M20 [Concomitant]
     Active Substance: POTASSIUM CHLORIDE
     Dosage: 20 MEQ
  10. PYRIDOXINE [Concomitant]
     Active Substance: PYRIDOXINE
     Dosage: 50 MG
  11. SPRYCEL [Concomitant]
     Active Substance: DASATINIB
     Dosage: 140 MG
     Dates: start: 20190926

REACTIONS (4)
  - Headache [Unknown]
  - Pain [Unknown]
  - Fatigue [Unknown]
  - Decreased appetite [Unknown]

NARRATIVE: CASE EVENT DATE: 20191001
